FAERS Safety Report 9782396 (Version 3)
Quarter: 2014Q1

REPORT INFORMATION
  Report Type: Spontaneous
  Country: GB (occurrence: GB)
  Receive Date: 20131226
  Receipt Date: 20140203
  Transmission Date: 20141002
  Serious: Yes (Life-Threatening, Hospitalization)
  Sender: FDA-Public Use
  Company Number: PHFR2013GB007285

PATIENT
  Age: 30 Year
  Sex: Male

DRUGS (6)
  1. CLOZARIL [Suspect]
     Indication: SCHIZOPHRENIA
     Dosage: UNK
     Route: 048
     Dates: start: 20131125
  2. CLOZARIL [Suspect]
     Dosage: 150 MG, DAILY
     Route: 048
     Dates: start: 20131204, end: 20131216
  3. DIAZEPAM [Concomitant]
     Indication: AGITATION
     Dosage: 5 MG, DAILY
     Route: 048
  4. SODIUM VALPROATE [Concomitant]
     Indication: AGITATION
     Dosage: 100 MG, DAILY
     Route: 048
  5. AMISULPRIDE [Concomitant]
     Indication: PSYCHOTIC DISORDER
     Dosage: 200 MG, DAILY
     Route: 048
  6. OMEPRAZOLE [Concomitant]
     Indication: GASTRITIS
     Dosage: 20 MG, DAILY
     Route: 048

REACTIONS (2)
  - Myocarditis [Recovered/Resolved]
  - Acute coronary syndrome [Recovered/Resolved]
